FAERS Safety Report 7930509-5 (Version None)
Quarter: 2011Q4

REPORT INFORMATION
  Report Type: 
  Country: None (occurrence: None)
  Receive Date: 20111121
  Receipt Date: 20111114
  Transmission Date: 20120403
  Serious: Yes (Other)
  Sender: FDA-Public Use
  Company Number: US-SANOFI-AVENTIS-2011SA075442

PATIENT
  Age: 81 Year
  Sex: Male

DRUGS (1)
  1. MULTAQ [Suspect]
     Indication: ATRIAL FIBRILLATION
     Route: 048
     Dates: start: 20110801, end: 20110928

REACTIONS (4)
  - GASTROOESOPHAGEAL REFLUX DISEASE [None]
  - VOMITING PROJECTILE [None]
  - WEIGHT DECREASED [None]
  - DECREASED APPETITE [None]
